FAERS Safety Report 12810156 (Version 4)
Quarter: 2017Q1

REPORT INFORMATION
  Report Type: Spontaneous
  Country: US (occurrence: US)
  Receive Date: 20161005
  Receipt Date: 20170215
  Transmission Date: 20170428
  Serious: No
  Sender: FDA-Public Use
  Company Number: US-PFIZER INC-2016462965

PATIENT
  Age: 52 Year
  Sex: Male
  Weight: 145.13 kg

DRUGS (2)
  1. SUTENT [Suspect]
     Active Substance: SUNITINIB MALATE
     Dosage: 50 MG, CYCLIC [DAY 1-14 Q 21 DAYS]
     Route: 048
     Dates: start: 20160921
  2. SUTENT [Suspect]
     Active Substance: SUNITINIB MALATE
     Indication: RENAL CELL CARCINOMA
     Dosage: 50 MG, CYCLIC, (DAILY FOR 28D AND THEN 14 D)
     Route: 048
     Dates: start: 20160921

REACTIONS (4)
  - Nausea [Unknown]
  - Epistaxis [Unknown]
  - Fatigue [Unknown]
  - Vomiting [Unknown]
